FAERS Safety Report 24540924 (Version 1)
Quarter: 2024Q4

REPORT INFORMATION
  Report Type: Spontaneous
  Country: US (occurrence: None)
  Receive Date: 20241023
  Receipt Date: 20241023
  Transmission Date: 20250115
  Serious: Yes (Death)
  Sender: Public
  Company Number: None

PATIENT
  Age: 86 Year
  Sex: Female

DRUGS (10)
  1. REPATHA [Suspect]
     Active Substance: EVOLOCUMAB
     Dosage: OTHER FREQUENCY : EVERY14DAYS;?
     Route: 058
     Dates: start: 20220705, end: 20240309
  2. CALCIUM 600MG [Concomitant]
  3. ASPIRIN 81MG [Concomitant]
  4. CITALOPRAM 10MG [Concomitant]
  5. LOSARTAN 100MG [Concomitant]
  6. MULTIPLE VITAMIN [Concomitant]
  7. PANTOPRAZOLE 20MG [Concomitant]
  8. VITAMIN B12 2000 MCG [Concomitant]
  9. MELOXICAM 15MG [Concomitant]
  10. CHOLESTYRAMINE 4 GRAM [Concomitant]

REACTIONS (1)
  - Death [None]

NARRATIVE: CASE EVENT DATE: 20240903
